FAERS Safety Report 21407085 (Version 2)
Quarter: 2022Q4

REPORT INFORMATION
  Report Type: Spontaneous
  Country: AR (occurrence: AR)
  Receive Date: 20221004
  Receipt Date: 20221104
  Transmission Date: 20230113
  Serious: No
  Sender: FDA-Public Use
  Company Number: AR-PFIZER INC-PV202200059991

PATIENT
  Age: 14 Year
  Sex: Male

DRUGS (1)
  1. GENOTROPIN [Suspect]
     Active Substance: SOMATROPIN
     Dosage: MORE THAN 2 MG, CYCLIC (6 TIMES A WEEK)
     Dates: start: 20170407

REACTIONS (2)
  - Device malfunction [Unknown]
  - Drug dose omission by device [Unknown]
